FAERS Safety Report 5065783-9 (Version None)
Quarter: 2006Q3

REPORT INFORMATION
  Report Type: 
  Country: None (occurrence: None)
  Receive Date: 20060726
  Receipt Date: 20060718
  Transmission Date: 20061208
  Serious: Yes (Other)
  Sender: FDA-Public Use
  Company Number: 2006RL000263

PATIENT
  Sex: Male

DRUGS (2)
  1. OMACOR [Suspect]
     Indication: BLOOD TRIGLYCERIDES
     Dosage: 2 GM BID PO
     Route: 048
  2. AMICAR [Suspect]
     Dosage: 2 GM BID PO
     Route: 048

REACTIONS (2)
  - INTERCEPTED DRUG DISPENSING ERROR [None]
  - MEDICATION ERROR [None]
